FAERS Safety Report 22873591 (Version 3)
Quarter: 2025Q2

REPORT INFORMATION
  Report Type: Report from Study
  Country: US (occurrence: US)
  Receive Date: 20230828
  Receipt Date: 20250513
  Transmission Date: 20250716
  Serious: Yes (Death, Hospitalization, Other)
  Sender: ABBVIE
  Company Number: US-ABBVIE-5184158

PATIENT
  Age: 74 Year
  Sex: Female
  Weight: 71 kg

DRUGS (19)
  1. VENCLEXTA [Suspect]
     Active Substance: VENETOCLAX
     Indication: Myelodysplastic syndrome
     Dosage: FORM STRENGTH: 100 MG
     Route: 048
     Dates: start: 20230501
  2. VENCLEXTA [Suspect]
     Active Substance: VENETOCLAX
     Indication: Myelodysplastic syndrome
     Dosage: FORM STRENGTH: 100 MG, DURATION TEXT: DAYS 1-14 OF A 28 DAY CYCLE
     Route: 048
     Dates: start: 20230427, end: 20230928
  3. VENCLEXTA [Suspect]
     Active Substance: VENETOCLAX
     Indication: Myelodysplastic syndrome
     Dosage: FORM STRENGTH: 100 MILLIGRAM?DURATION TEXT: DAYS 1-14 OF A 28 DAY CYCLE, 1-21 OF 28 DAY CYCLE
     Route: 048
  4. ITRACONAZOLE [Concomitant]
     Active Substance: ITRACONAZOLE
     Indication: Product used for unknown indication
     Dosage: TAKE 2 CAPSULES TWICE PER DAY WHILE ON CHEMOTHERAPY, FORM STRENGTH: 100 MG
     Route: 048
     Dates: start: 20230501
  5. LASIX [Concomitant]
     Active Substance: FUROSEMIDE
     Indication: Fluid retention
  6. LASIX [Concomitant]
     Active Substance: FUROSEMIDE
     Indication: Fluid retention
  7. MONTELUKAST [Concomitant]
     Active Substance: MONTELUKAST
     Indication: Multiple allergies
     Dosage: FORM STRENGTH: 10 MG
     Route: 048
     Dates: start: 20230224
  8. COLACE [Concomitant]
     Active Substance: DOCUSATE SODIUM
     Indication: Product used for unknown indication
     Dosage: FORM STRENGTH: 100 MG
     Route: 048
     Dates: start: 20230503
  9. FLUCONAZOLE [Concomitant]
     Active Substance: FLUCONAZOLE
     Indication: Product used for unknown indication
     Dosage: 1 P.O. A DAILY FOR PROPHYLAXIS WHEN STARTING CHEMOTHERAPY,?FORM STRENGTH: 200 MG
     Route: 048
     Dates: start: 20221227
  10. MIRALAX [Concomitant]
     Active Substance: POLYETHYLENE GLYCOL 3350
     Indication: Product used for unknown indication
     Dosage: 1 PACKET DAILY PRN, FORM STRENGTH: 17 GRAM, DURATION TEXT: 17 GRAM POWDER PACKET
     Route: 048
     Dates: start: 20230503
  11. ACYCLOVIR [Concomitant]
     Active Substance: ACYCLOVIR
     Indication: Product used for unknown indication
     Dosage: 1 P.O. A DAY (BID) FOR PROPHYLAXIS WHEN STARTING CHEMOTHERAPY, ?FORM STRENGTH: 400 MG
     Route: 048
     Dates: start: 20221227
  12. CEFPODOXIME [Concomitant]
     Active Substance: CEFPODOXIME
     Indication: Product used for unknown indication
     Dosage: 1 P.O. A DAY (BID) FOR PROPHYLAXIS WHEN STARTING CHEMOTHERAPY, ?FORM STRENGTH: 200 MG
     Route: 048
     Dates: start: 20221227
  13. AZACITIDINE [Suspect]
     Active Substance: AZACITIDINE
     Indication: Product used for unknown indication
     Route: 042
     Dates: start: 20230427, end: 20230728
  14. AZACITIDINE [Suspect]
     Active Substance: AZACITIDINE
     Indication: Product used for unknown indication
     Route: 042
  15. VORICONAZOLE [Concomitant]
     Active Substance: VORICONAZOLE
     Indication: Product used for unknown indication
     Dosage: 1 P.O. DAILY TWICE A DAY (BID), FORM STRENGTH: 200 MG
     Route: 048
     Dates: start: 20230424
  16. ONDANSETRON [Concomitant]
     Active Substance: ONDANSETRON
     Indication: Nausea
     Dosage: 1 P.O. Q. 6 HOURS (QID) PRN NAUSEA?FORM STRENGTH: 4 MILLIGRAM
     Route: 048
     Dates: start: 20230528
  17. HERBALS\TURMERIC [Concomitant]
     Active Substance: HERBALS\TURMERIC
     Indication: Product used for unknown indication
     Route: 048
     Dates: start: 20230503
  18. VIDAZA [Concomitant]
     Active Substance: AZACITIDINE
     Indication: Product used for unknown indication
     Dates: start: 20230622
  19. LEVOTHYROXINE [Concomitant]
     Active Substance: LEVOTHYROXINE
     Indication: Product used for unknown indication
     Dosage: FORM STRENGTH 112 MICROGRAM
     Route: 048
     Dates: start: 20221202

REACTIONS (9)
  - Death [Fatal]
  - Off label use [Unknown]
  - Dyspepsia [Unknown]
  - Asthenia [Unknown]
  - Pneumonia [Unknown]
  - Poor quality sleep [Unknown]
  - White blood cell count decreased [Unknown]
  - Oedema peripheral [Recovering/Resolving]
  - Atrial fibrillation [Unknown]

NARRATIVE: CASE EVENT DATE: 20230101
